FAERS Safety Report 10463729 (Version 4)
Quarter: 2014Q4

REPORT INFORMATION
  Report Type: Report from Study
  Country: MX (occurrence: MX)
  Receive Date: 20140919
  Receipt Date: 20141118
  Transmission Date: 20150528
  Serious: Yes (Death, Hospitalization, Other)
  Sender: FDA-Public Use
  Company Number: PHHY2014MX121318

PATIENT
  Age: 71 Year
  Sex: Male
  Weight: 63 kg

DRUGS (4)
  1. GLIVEC [Suspect]
     Active Substance: IMATINIB MESYLATE
     Indication: CHRONIC MYELOID LEUKAEMIA
     Dosage: 400 MG, UNK
     Route: 065
  2. GLIVEC [Suspect]
     Active Substance: IMATINIB MESYLATE
     Dosage: 200 MG, QD
     Route: 065
     Dates: start: 20140508
  3. GLIVEC [Suspect]
     Active Substance: IMATINIB MESYLATE
     Dosage: 300 MG, UNK
     Route: 065
  4. GLIVEC [Suspect]
     Active Substance: IMATINIB MESYLATE
     Dosage: 200 MG, UNK
     Route: 065

REACTIONS (21)
  - Second primary malignancy [Fatal]
  - Thrombosis [Unknown]
  - Deep vein thrombosis [Unknown]
  - Hepatomegaly [Unknown]
  - Haemoglobin decreased [Unknown]
  - Colon cancer metastatic [Fatal]
  - Melaena [Unknown]
  - Anaemia [Unknown]
  - Cor pulmonale [Unknown]
  - Mucopolysaccharidosis [Unknown]
  - Metastases to liver [Unknown]
  - Chronic myeloid leukaemia [Fatal]
  - Gastric disorder [Recovering/Resolving]
  - General physical health deterioration [Unknown]
  - Pulmonary venous thrombosis [Unknown]
  - Haematotoxicity [Unknown]
  - Rectal haemorrhage [Unknown]
  - Oedema peripheral [Unknown]
  - Adenocarcinoma of colon [Fatal]
  - Pulmonary arterial hypertension [Unknown]
  - Platelet count increased [Unknown]

NARRATIVE: CASE EVENT DATE: 20140514
